FAERS Safety Report 11319343 (Version 1)
Quarter: 2015Q3

REPORT INFORMATION
  Report Type: Spontaneous
  Country: BR (occurrence: BR)
  Receive Date: 20150729
  Receipt Date: 20150729
  Transmission Date: 20151125
  Serious: Yes (Other)
  Sender: FDA-Public Use
  Company Number: BR-PFIZER INC-2015237973

PATIENT
  Age: 76 Year
  Sex: Female
  Weight: 55 kg

DRUGS (12)
  1. METAMIZOLE [Concomitant]
     Active Substance: METAMIZOLE
     Indication: ABDOMINAL PAIN
     Dosage: 1 TABLET, WHEN PAIN
  2. METAMIZOLE [Concomitant]
     Active Substance: METAMIZOLE
     Indication: ABDOMINAL PAIN
  3. OMEPRAZOLE. [Concomitant]
     Active Substance: OMEPRAZOLE
     Indication: GASTROINTESTINAL DISORDER
     Dosage: 1 TABLET OF STRENGTH 20 MG, DAILY
  4. BENICAR [Concomitant]
     Active Substance: OLMESARTAN MEDOXOMIL
     Indication: HYPERTENSION
     Dosage: 1 TABLET OF STRENGTH 20 MG, DAILY
     Dates: start: 2011
  5. LITHIUM CARBONATE. [Concomitant]
     Active Substance: LITHIUM CARBONATE
     Indication: DEPRESSION
     Dosage: 1 TABLET AND A HALF OF STRENGTH 300 MG (450 MG), DAILY
     Dates: start: 2012
  6. RIVOTRIL [Concomitant]
     Active Substance: CLONAZEPAM
     Indication: ANXIETY
     Dosage: HALF TABLET OF STRENGTH 2 MG (1 MG), DAILY
  7. ASPIRINA PREVENT [Concomitant]
     Active Substance: ASPIRIN
     Indication: COAGULOPATHY
     Dosage: 1 TABLET OF STRENGTH 100 MG, DAILY
     Dates: start: 2006
  8. ATENOLOL. [Concomitant]
     Active Substance: ATENOLOL
     Indication: HYPERTENSION
     Dosage: 2 TABLETS OF STRENGTH 25 MG (50 MG), DAILY
     Dates: start: 2011
  9. LONCORD [Concomitant]
     Indication: HYPERTENSION
     Dosage: 1 TABLET OF STRENGTH 20 MG, DAILY
     Dates: start: 2011
  10. MIRTAZAPINE. [Concomitant]
     Active Substance: MIRTAZAPINE
     Indication: DEPRESSION
     Dosage: 1 TABLET OF STRENGTH 30 MG, DAILY
     Dates: start: 2014
  11. LIPITOR [Suspect]
     Active Substance: ATORVASTATIN CALCIUM
     Indication: PROPHYLAXIS
     Dosage: 20 MG (1 TABLET), DAILY
     Route: 048
     Dates: end: 201503
  12. QUETIAPINE HEMIFUMARATE [Concomitant]
     Active Substance: QUETIAPINE FUMARATE
     Indication: SCHIZOPHRENIA
     Dosage: 1 TABLET, DAILY
     Dates: start: 2012

REACTIONS (1)
  - Ischaemic stroke [Unknown]

NARRATIVE: CASE EVENT DATE: 201503
